FAERS Safety Report 9644286 (Version 2)
Quarter: 2013Q4

REPORT INFORMATION
  Report Type: Spontaneous
  Country: DE (occurrence: DE)
  Receive Date: 20131025
  Receipt Date: 20131128
  Transmission Date: 20140711
  Serious: Yes (Hospitalization)
  Sender: FDA-Public Use
  Company Number: DE-ROCHE-1293946

PATIENT
  Age: 62 Year
  Sex: 0

DRUGS (10)
  1. ZELBORAF [Suspect]
     Indication: METASTATIC MALIGNANT MELANOMA
     Route: 048
     Dates: start: 20131006, end: 20131021
  2. ZELBORAF [Suspect]
     Route: 048
     Dates: start: 20131106
  3. AMIODARONA [Concomitant]
     Indication: ATRIAL FIBRILLATION
     Route: 048
     Dates: start: 2008, end: 20131024
  4. NEBIVOLOL [Concomitant]
     Indication: HYPERTENSION
     Route: 048
     Dates: start: 2007, end: 20131024
  5. LISINOPRIL [Concomitant]
     Indication: HYPERTENSION
     Route: 048
     Dates: start: 2007, end: 20130815
  6. LISINOPRIL [Concomitant]
     Route: 048
     Dates: start: 20130815
  7. HYDROCHLOROTHIAZIDE [Concomitant]
     Indication: HYPERTENSION
     Route: 048
     Dates: start: 2007, end: 20130815
  8. HYDROCHLOROTHIAZIDE [Concomitant]
     Route: 048
     Dates: start: 20130815
  9. PERMETHRIN [Concomitant]
     Indication: ROSACEA
     Route: 061
     Dates: start: 20131004, end: 201310
  10. METRONIDAZOL [Concomitant]
     Indication: ROSACEA
     Route: 061
     Dates: start: 20131004, end: 201310

REACTIONS (2)
  - Hypotension [Recovered/Resolved]
  - Atrial fibrillation [Recovered/Resolved]
